FAERS Safety Report 7658824-3 (Version None)
Quarter: 2011Q3

REPORT INFORMATION
  Report Type: 
  Country: None (occurrence: None)
  Receive Date: 20110805
  Receipt Date: 20110803
  Transmission Date: 20111222
  Serious: Yes (Life-Threatening, Hospitalization, Disabling)
  Sender: FDA-Public Use
  Company Number: DE-SANOFI-AVENTIS-2011SA049519

PATIENT
  Age: 59 Year
  Sex: Male
  Weight: 120 kg

DRUGS (8)
  1. MORPHINE [Concomitant]
     Dosage: 10 MG AND 60 MG; 20-0-80 MG
     Route: 048
  2. CYMBALTA [Concomitant]
     Route: 048
  3. MULTAQ [Suspect]
     Indication: ATRIAL FIBRILLATION
     Route: 048
     Dates: end: 20110101
  4. CYMBALTA [Concomitant]
     Indication: ADJUVANT THERAPY
     Route: 048
  5. PANTOPRAZOLE SODIUM [Concomitant]
     Indication: GASTROOESOPHAGEAL REFLUX DISEASE
     Route: 048
  6. MOVIPREP [Concomitant]
     Route: 048
  7. PHENPROCOUMON [Concomitant]
     Indication: CEREBROVASCULAR ACCIDENT PROPHYLAXIS
     Dosage: ACCORDING TO INR LEVEL
     Route: 048
  8. BISOPROLOL FUMARATE [Concomitant]
     Route: 048

REACTIONS (5)
  - CARDIAC ARREST [None]
  - CIRCULATORY COLLAPSE [None]
  - UNDERDOSE [None]
  - DYSPNOEA [None]
  - FATIGUE [None]
